FAERS Safety Report 7727653-4 (Version None)
Quarter: 2011Q3

REPORT INFORMATION
  Report Type: 
  Country: None (occurrence: None)
  Receive Date: 20110902
  Receipt Date: 20110829
  Transmission Date: 20111222
  Serious: Yes (Congenital Anomaly, Other)
  Sender: FDA-Public Use
  Company Number: US-PFIZER INC-2011077307

PATIENT

DRUGS (4)
  1. HYDROCODONE [Concomitant]
     Indication: ARTHRITIS
     Dosage: UNK
     Route: 064
  2. ZOLOFT [Suspect]
     Dosage: UNK
     Route: 064
  3. SEROQUEL [Concomitant]
     Dosage: UNK
     Route: 064
  4. REVIA [Concomitant]
     Dosage: 25 MG, 2X/DAY
     Route: 064
     Dates: start: 20011030, end: 20020108

REACTIONS (2)
  - MATERNAL EXPOSURE DURING PREGNANCY [None]
  - CONGENITAL ANOMALY [None]
